FAERS Safety Report 17692916 (Version 8)
Quarter: 2022Q4

REPORT INFORMATION
  Report Type: Report from Study
  Country: US (occurrence: US)
  Receive Date: 20200422
  Receipt Date: 20221128
  Transmission Date: 20230113
  Serious: Yes (Hospitalization)
  Sender: FDA-Public Use
  Company Number: US-NOVARTISPH-NVSC2020US107034

PATIENT
  Age: 37 Year
  Sex: Female
  Weight: 84.998 kg

DRUGS (6)
  1. TREPROSTINIL [Suspect]
     Active Substance: TREPROSTINIL
     Indication: Pulmonary arterial hypertension
     Dosage: 40 NG/KG/MIN, CONT
     Route: 042
     Dates: start: 20200324
  2. TREPROSTINIL [Suspect]
     Active Substance: TREPROSTINIL
     Dosage: 44 NG/KG/MIN, CONT
     Route: 042
  3. TREPROSTINIL [Suspect]
     Active Substance: TREPROSTINIL
     Dosage: 57.5 NG/KG/MIN, CONT
     Route: 042
  4. TREPROSTINIL [Suspect]
     Active Substance: TREPROSTINIL
     Dosage: 90 NG/KG/MIN, CONT
     Route: 042
  5. ELIQUIS [Concomitant]
     Active Substance: APIXABAN
     Indication: Product used for unknown indication
     Dosage: UNK
     Route: 065
  6. LETAIRIS [Concomitant]
     Active Substance: AMBRISENTAN
     Indication: Pulmonary arterial hypertension
     Dosage: UNK
     Route: 065

REACTIONS (9)
  - Vascular device infection [Recovered/Resolved]
  - Staphylococcal infection [Recovered/Resolved]
  - Sepsis [Unknown]
  - Diarrhoea [Unknown]
  - Hypersensitivity [Recovering/Resolving]
  - Infusion site infection [Unknown]
  - Vomiting [Unknown]
  - Infection [Unknown]
  - Dyspnoea [Recovered/Resolved]

NARRATIVE: CASE EVENT DATE: 20200827
